FAERS Safety Report 4650538-7 (Version None)
Quarter: 2005Q2

REPORT INFORMATION
  Report Type: 
  Country: None (occurrence: None)
  Receive Date: 20050429
  Receipt Date: 20050414
  Transmission Date: 20051028
  Serious: Yes (Hospitalization)
  Sender: FDA-Public Use
  Company Number: DSA_26332_2005

PATIENT

DRUGS (5)
  1. RENIVACE [Suspect]
     Indication: HYPERTENSION
     Dosage: DF PO
     Route: 048
  2. ADALAT [Concomitant]
  3. ASPIRIN [Concomitant]
  4. CIBENOL [Concomitant]
  5. ZANTAC [Concomitant]

REACTIONS (1)
  - INTERSTITIAL LUNG DISEASE [None]
